FAERS Safety Report 12171712 (Version 3)
Quarter: 2016Q2

REPORT INFORMATION
  Report Type: Spontaneous
  Country: CZ (occurrence: CZ)
  Receive Date: 20160311
  Receipt Date: 20160404
  Transmission Date: 20160815
  Serious: Yes (Other)
  Sender: FDA-Public Use
  Company Number: CZ-PFIZER INC-2016145415

PATIENT
  Age: 44 Year
  Sex: Male

DRUGS (1)
  1. XALKORI [Suspect]
     Active Substance: CRIZOTINIB
     Indication: NON-SMALL CELL LUNG CANCER
     Dosage: 250 MG, 2X/DAY, 1-0-1
     Dates: start: 20150901, end: 20160307

REACTIONS (3)
  - Non-small cell lung cancer [Unknown]
  - Pancreatitis [Unknown]
  - Disease progression [Unknown]

NARRATIVE: CASE EVENT DATE: 20160223
